FAERS Safety Report 7432646-0 (Version None)
Quarter: 2011Q2

REPORT INFORMATION
  Report Type: 
  Country: None (occurrence: None)
  Receive Date: 20110422
  Receipt Date: 20110408
  Transmission Date: 20111010
  Serious: Yes (Other)
  Sender: FDA-Public Use
  Company Number: PHHY2011US23856

PATIENT
  Sex: Female

DRUGS (9)
  1. ANABRICIN [Suspect]
     Dosage: 250 MG, UNK
  2. DIOVAN HCT [Suspect]
     Dosage: 160/12.5 MG ONCE PER DAY
     Dates: start: 20110228
  3. GLUCOPHAGE [Concomitant]
  4. COLACE [Concomitant]
  5. SKELAXIN [Concomitant]
  6. VYTORIN [Concomitant]
  7. DIOVAN [Suspect]
     Dosage: 80 MG, QD
  8. ZANTAC [Concomitant]
  9. PROFENID ^VITORIA^ [Concomitant]

REACTIONS (9)
  - MOUTH ULCERATION [None]
  - FOOT FRACTURE [None]
  - ARTHRITIS [None]
  - FEELING COLD [None]
  - DIABETES MELLITUS [None]
  - ABDOMINAL DISCOMFORT [None]
  - FEELING HOT [None]
  - RHINORRHOEA [None]
  - STOMATITIS [None]
